FAERS Safety Report 8462331-8 (Version None)
Quarter: 2012Q2

REPORT INFORMATION
  Report Type: 
  Country: None (occurrence: None)
  Receive Date: 20120625
  Receipt Date: 20120620
  Transmission Date: 20120825
  Serious: No
  Sender: FDA-Public Use
  Company Number: US-PFIZER INC-2012149763

PATIENT
  Sex: Male
  Weight: 74.83 kg

DRUGS (4)
  1. WARFARIN [Concomitant]
     Indication: CARDIAC DISORDER
     Dosage: UNK
  2. POTASSIUM [Concomitant]
     Dosage: UNK
  3. AMBIEN [Concomitant]
     Indication: SLEEP DISORDER
     Dosage: UNK
  4. LYRICA [Suspect]
     Indication: NEURALGIA
     Dosage: 50 MG, 3X/DAY
     Dates: start: 20120301, end: 20120401

REACTIONS (2)
  - TESTICULAR OEDEMA [None]
  - OEDEMA PERIPHERAL [None]
